FAERS Safety Report 8498831-4 (Version None)
Quarter: 2012Q3

REPORT INFORMATION
  Report Type: 
  Country: None (occurrence: None)
  Receive Date: 20120710
  Receipt Date: 20120627
  Transmission Date: 20120928
  Serious: Yes (Hospitalization)
  Sender: FDA-Public Use
  Company Number: NL-AMGEN-NLDCT2012040949

PATIENT
  Age: 55 Year
  Sex: Female
  Weight: 60.9 kg

DRUGS (5)
  1. LEVOCETIRIZINE DIHYDROCHLORIDE [Concomitant]
     Indication: SEASONAL ALLERGY
     Dosage: UNK
     Route: 048
  2. TRAMADOL HCL [Concomitant]
     Dosage: UNK
  3. ETANERCEPT [Suspect]
     Indication: PRODUCT USED FOR UNKNOWN INDICATION
     Dosage: 50 MG, 2 TIMES/WK
     Dates: start: 20110421, end: 20110822
  4. ANTIDEPRESSANTS [Concomitant]
     Dosage: UNK
  5. RITALIN [Concomitant]
     Indication: AFFECTIVE DISORDER
     Dosage: UNK
     Route: 048
     Dates: start: 20110501

REACTIONS (2)
  - VASCULITIS [None]
  - ORGANISING PNEUMONIA [None]
